FAERS Safety Report 8854593 (Version 3)
Quarter: 2013Q2

REPORT INFORMATION
  Report Type: Report from Study
  Country: UA (occurrence: UA)
  Receive Date: 20121023
  Receipt Date: 20130429
  Transmission Date: 20140414
  Serious: Yes (Hospitalization, Other)
  Sender: FDA-Public Use
  Company Number: UA-PFIZER INC-2012255875

PATIENT
  Age: 59 Year
  Sex: Female
  Weight: 61.9 kg

DRUGS (7)
  1. TOFACITINIB CITRATE [Suspect]
     Indication: RHEUMATOID ARTHRITIS
     Dosage: TWICE DAILY
     Route: 048
     Dates: start: 20111123, end: 20121007
  2. METHOTREXATE [Suspect]
     Indication: RHEUMATOID ARTHRITIS
     Dosage: 7.5 MG, WEEKLY
     Route: 048
     Dates: start: 20120629, end: 20121007
  3. METHYLPREDNISOLONE [Suspect]
     Indication: RHEUMATOID ARTHRITIS
     Dosage: 8 MG, 1X/DAY
     Route: 048
     Dates: start: 20090223
  4. FOLIC ACID [Concomitant]
     Indication: RHEUMATOID ARTHRITIS
     Dosage: 5 MG, WEEKLY
     Route: 048
     Dates: start: 20060630, end: 20121007
  5. MELOXICAM [Concomitant]
     Indication: RHEUMATOID ARTHRITIS
     Dosage: 15 MG, 1X/DAY
     Route: 048
     Dates: start: 20120710
  6. OMEPRAZOL [Concomitant]
     Indication: PROPHYLAXIS
     Dosage: 20 MG, 1X/DAY
     Route: 048
     Dates: start: 200810
  7. ASCORBIC ACID/FERROUS SULFATE [Concomitant]
     Indication: ANAEMIA
     Dosage: 1 DF, 1X/DAY
     Route: 048
     Dates: start: 20120812

REACTIONS (1)
  - Pulmonary tuberculosis [Not Recovered/Not Resolved]
